FAERS Safety Report 9223191 (Version 1)
Quarter: 2013Q2

REPORT INFORMATION
  Report Type: Spontaneous
  Country: US (occurrence: US)
  Receive Date: 20130410
  Receipt Date: 20130410
  Transmission Date: 20140414
  Serious: Yes (Other)
  Sender: FDA-Public Use
  Company Number: US-AMGEN-USASP2013001424

PATIENT
  Sex: Female

DRUGS (3)
  1. PROLIA [Suspect]
     Indication: OSTEOPOROSIS POSTMENOPAUSAL
     Dosage: 60 MG, UNK
     Dates: start: 20121206
  2. CALCIUM [Concomitant]
     Dosage: 2000 MG, UNK
  3. VITAMIN D /00107901/ [Concomitant]

REACTIONS (14)
  - Gastrointestinal haemorrhage [Unknown]
  - Balance disorder [Unknown]
  - Abdominal distension [Unknown]
  - Abdominal pain [Unknown]
  - Muscle spasms [Unknown]
  - Fibromyalgia [Unknown]
  - Pain [Unknown]
  - Influenza like illness [Unknown]
  - Bone disorder [Unknown]
  - Musculoskeletal pain [Unknown]
  - Insomnia [Unknown]
  - Fatigue [Unknown]
  - Myalgia [Unknown]
  - Pain in extremity [Unknown]
